FAERS Safety Report 16418369 (Version 2)
Quarter: 2021Q2

REPORT INFORMATION
  Report Type: Spontaneous
  Country: ES (occurrence: ES)
  Receive Date: 20190612
  Receipt Date: 20210503
  Transmission Date: 20210716
  Serious: Yes (Hospitalization)
  Sender: FDA-Public Use
  Company Number: ES-EMCURE PHARMACEUTICALS LTD-2019-EPL-0275

PATIENT
  Age: 3 Year
  Sex: Female

DRUGS (8)
  1. GARDASIL [Concomitant]
     Active Substance: HUMAN PAPILLOMAVIRUS QUADRIVALENT (TYPES 6, 11, 16, AND 18) VACCINE, RECOMBINANT
     Indication: LARYNGEAL PAPILLOMA
  2. INDOLE?3?CARBINOL [Concomitant]
     Active Substance: DIETARY SUPPLEMENT
     Indication: PAPILLOMA VIRAL INFECTION
     Route: 048
  3. INTERFERON ALFA NOS [Concomitant]
     Active Substance: INTERFERON ALFA-2A OR INTERFERON ALFA-2B
     Indication: LARYNGEAL PAPILLOMA
  4. CIDOFOVIR. [Suspect]
     Active Substance: CIDOFOVIR
     Dosage: 4 ML AT A CONCENTRATION OF 10 MG/ML, 3 TIMES PER WEEK
  5. GARDASIL [Concomitant]
     Active Substance: HUMAN PAPILLOMAVIRUS QUADRIVALENT (TYPES 6, 11, 16, AND 18) VACCINE, RECOMBINANT
     Indication: PAPILLOMA VIRAL INFECTION
  6. CIDOFOVIR. [Suspect]
     Active Substance: CIDOFOVIR
     Dosage: UNK
     Route: 026
  7. INTERFERON ALFA NOS [Concomitant]
     Active Substance: INTERFERON ALFA-2A OR INTERFERON ALFA-2B
     Indication: PAPILLOMA VIRAL INFECTION
     Route: 058
  8. INDOLE?3?CARBINOL [Concomitant]
     Active Substance: DIETARY SUPPLEMENT
     Indication: LARYNGEAL PAPILLOMA

REACTIONS (4)
  - Haemoptysis [Recovered/Resolved]
  - Product use in unapproved indication [Unknown]
  - Oxygen saturation decreased [Unknown]
  - Product use issue [Unknown]
